FAERS Safety Report 9455931 (Version 1)
Quarter: 2013Q3

REPORT INFORMATION
  Report Type: Spontaneous
  Country: US (occurrence: US)
  Receive Date: 20130813
  Receipt Date: 20130813
  Transmission Date: 20140515
  Serious: Yes (Other)
  Sender: FDA-Public Use
  Company Number: US-ABBOTT-13P-163-1128012-00

PATIENT
  Sex: Female
  Weight: 59.02 kg

DRUGS (4)
  1. HUMIRA [Suspect]
     Indication: CROHN^S DISEASE
     Route: 058
     Dates: end: 201303
  2. PREMARIN [Concomitant]
     Indication: MENOPAUSE
     Dates: end: 201303
  3. PROVERA [Concomitant]
     Indication: MENOPAUSE
     Dates: end: 201303
  4. OMEPRAZOLE [Concomitant]
     Indication: DUODENAL ULCER

REACTIONS (7)
  - Pelvic infection [Recovered/Resolved]
  - Lymphadenopathy [Not Recovered/Not Resolved]
  - Pelvic mass [Recovered/Resolved]
  - Vaginal discharge [Unknown]
  - Skin papilloma [Recovered/Resolved]
  - Pelvic pain [Unknown]
  - Nasopharyngitis [Not Recovered/Not Resolved]
